FAERS Safety Report 20767696 (Version 2)
Quarter: 2022Q2

REPORT INFORMATION
  Report Type: Report from Study
  Country: US (occurrence: US)
  Receive Date: 20220429
  Receipt Date: 20220628
  Transmission Date: 20220721
  Serious: Yes (Hospitalization, Other)
  Sender: FDA-Public Use
  Company Number: US-GILEAD-2022-0579310

PATIENT
  Age: 8 Year
  Sex: Male

DRUGS (28)
  1. AZTREONAM LYSINE [Suspect]
     Active Substance: AZTREONAM LYSINE
     Indication: Bacterial disease carrier
     Dosage: UNK, TID FOR 28 DAYS ON AND 28 DAYS OFF
     Route: 055
  2. HYDROCORTISONE [Concomitant]
     Active Substance: HYDROCORTISONE
  3. TRIAMCINOLONE ACETONIDE [Concomitant]
     Active Substance: TRIAMCINOLONE ACETONIDE
  4. SCOPOLAMINE HYDROBROMIDE [Concomitant]
     Active Substance: SCOPOLAMINE HYDROBROMIDE
  5. SODIUM CHLORIDE [Concomitant]
     Active Substance: SODIUM CHLORIDE
  6. OMEPRAZOLE [Concomitant]
     Active Substance: OMEPRAZOLE
  7. ILEX [Concomitant]
  8. AVEENO [Concomitant]
     Active Substance: DIMETHICONE\HOMOSALATE\OCTINOXATE\OCTISALATE\TITANIUM DIOXIDE
  9. ACETAMINOPHEN [Concomitant]
     Active Substance: ACETAMINOPHEN
  10. IMURAN [Concomitant]
     Active Substance: AZATHIOPRINE
  11. GLYCOPYRROLATE [Concomitant]
     Active Substance: GLYCOPYRROLATE
  12. KETOCONAZOLE [Concomitant]
     Active Substance: KETOCONAZOLE
  13. CALCITRIOL [Concomitant]
     Active Substance: CALCITRIOL
  14. ELIDEL [Concomitant]
     Active Substance: PIMECROLIMUS
  15. CETIRIZINE HCL [Concomitant]
     Active Substance: CETIRIZINE HYDROCHLORIDE
  16. A AND D NOS [Concomitant]
     Active Substance: DIMETHICONE\ZINC OXIDE OR PETROLATUM
  17. ALBUTEROL SULFATE [Concomitant]
     Active Substance: ALBUTEROL SULFATE
  18. MIRALAX [Concomitant]
     Active Substance: POLYETHYLENE GLYCOL 3350
  19. FLUTICASONE PROPIONATE [Concomitant]
     Active Substance: FLUTICASONE PROPIONATE
  20. BENADRYL ALLERGY [Concomitant]
     Active Substance: DIPHENHYDRAMINE HYDROCHLORIDE
  21. CALCIUM CARBONATE [Concomitant]
     Active Substance: CALCIUM CARBONATE
  22. TOBRAMYCIN [Concomitant]
     Active Substance: TOBRAMYCIN
  23. METOCLOPRAMIDE HYDROCHLORIDE [Concomitant]
     Active Substance: METOCLOPRAMIDE HYDROCHLORIDE
  24. METRONIDAZOLE BENZOATE [Concomitant]
     Active Substance: METRONIDAZOLE BENZOATE
  25. FLOVENT HFA [Concomitant]
     Active Substance: FLUTICASONE PROPIONATE
  26. SCOPOLAN [Concomitant]
  27. ASPIRIN [Concomitant]
     Active Substance: ASPIRIN
  28. LASIX [Concomitant]
     Active Substance: FUROSEMIDE

REACTIONS (2)
  - Cardiac operation [Unknown]
  - Off label use [Unknown]

NARRATIVE: CASE EVENT DATE: 20220412
